FAERS Safety Report 19458183 (Version 3)
Quarter: 2021Q3

REPORT INFORMATION
  Report Type: Spontaneous
  Country: AU (occurrence: AU)
  Receive Date: 20210624
  Receipt Date: 20210726
  Transmission Date: 20211014
  Serious: Yes (Disabling, Other)
  Sender: FDA-Public Use
  Company Number: AU-SA-2021SA207662

PATIENT
  Age: 25 Year
  Sex: Female

DRUGS (2)
  1. SUMATRIPTAN. [Concomitant]
     Active Substance: SUMATRIPTAN
  2. DUPIXENT [Suspect]
     Active Substance: DUPILUMAB
     Indication: ECZEMA
     Dosage: 300 MG, QOW
     Dates: start: 20210308

REACTIONS (15)
  - Ankylosing spondylitis [Unknown]
  - Pain [Unknown]
  - Skin weeping [Unknown]
  - Nausea [Unknown]
  - Eczema [Unknown]
  - Malaise [Not Recovered/Not Resolved]
  - Gait inability [Unknown]
  - Migraine [Not Recovered/Not Resolved]
  - Headache [Unknown]
  - Hyperacusis [Not Recovered/Not Resolved]
  - Impaired driving ability [Unknown]
  - Dizziness [Not Recovered/Not Resolved]
  - Muscle spasms [Not Recovered/Not Resolved]
  - Influenza [Unknown]
  - Photosensitivity reaction [Not Recovered/Not Resolved]

NARRATIVE: CASE EVENT DATE: 2021
